FAERS Safety Report 14840598 (Version 3)
Quarter: 2020Q4

REPORT INFORMATION
  Report Type: Spontaneous
  Country: US (occurrence: US)
  Receive Date: 20180503
  Receipt Date: 20201112
  Transmission Date: 20210113
  Serious: Yes (Hospitalization)
  Sender: FDA-Public Use
  Company Number: US-TEVA-2018-US-887741

PATIENT
  Age: 13 Year
  Sex: Female

DRUGS (3)
  1. CODEINE [Suspect]
     Active Substance: CODEINE
     Route: 065
  2. MORPHINE [Suspect]
     Active Substance: MORPHINE
     Route: 048
  3. HYDROMORPHONE [Suspect]
     Active Substance: HYDROMORPHONE
     Route: 065

REACTIONS (7)
  - Toxicity to various agents [Unknown]
  - Drug dependence [Unknown]
  - Acute respiratory distress syndrome [Unknown]
  - Acute chest syndrome [Unknown]
  - Overdose [Unknown]
  - Acute kidney injury [Unknown]
  - Posterior reversible encephalopathy syndrome [Unknown]
